FAERS Safety Report 4929654-8 (Version None)
Quarter: 2006Q1

REPORT INFORMATION
  Report Type: 
  Country: None (occurrence: None)
  Receive Date: 20060224
  Receipt Date: 20060215
  Transmission Date: 20060701
  Serious: Yes (Death)
  Sender: FDA-Public Use
  Company Number: 2006023901

PATIENT
  Sex: Male

DRUGS (1)
  1. CELEBREX [Suspect]
     Indication: ILL-DEFINED DISORDER
     Dates: start: 20010101, end: 20050201

REACTIONS (3)
  - CEREBROVASCULAR ACCIDENT [None]
  - THROMBOSIS [None]
  - VASCULAR INJURY [None]
